FAERS Safety Report 7085407-9 (Version None)
Quarter: 2010Q4

REPORT INFORMATION
  Report Type: 
  Country: None (occurrence: None)
  Receive Date: 20101105
  Receipt Date: 20101101
  Transmission Date: 20110411
  Serious: Yes (Other)
  Sender: FDA-Public Use
  Company Number: US-PFIZER INC-2010139528

PATIENT
  Sex: Male
  Weight: 81.633 kg

DRUGS (6)
  1. XANAX [Suspect]
     Indication: ANXIETY
     Dosage: 4 MG/DAY
     Dates: start: 19840101
  2. XANAX [Suspect]
     Indication: INSOMNIA
  3. CELEBREX [Suspect]
     Indication: PAIN
     Dosage: 200MG, DAILY
     Dates: start: 20060101
  4. ZOLOFT [Suspect]
     Indication: DEPRESSION
     Dosage: 200 MG, 1X/DAY
  5. HYDROCODONE BITARTRATE AND IBUPROFEN [Concomitant]
     Indication: PAIN
     Dosage: 10-650 MG, 4X/DAY
     Route: 048
     Dates: start: 20000101
  6. NORTRIPTYLINE HYDROCHLORIDE [Concomitant]
     Indication: PAIN
     Dosage: UNK, DAILY
     Route: 048
     Dates: start: 20100101, end: 20100101

REACTIONS (5)
  - BLOOD CHOLESTEROL INCREASED [None]
  - BLOOD THYROID STIMULATING HORMONE INCREASED [None]
  - BLOOD TRIGLYCERIDES INCREASED [None]
  - DEPENDENCE [None]
  - INCORRECT DOSE ADMINISTERED [None]
